FAERS Safety Report 10204216 (Version 1)
Quarter: 2014Q2

REPORT INFORMATION
  Report Type: Spontaneous
  Country: HR (occurrence: HR)
  Receive Date: 20140529
  Receipt Date: 20140529
  Transmission Date: 20141212
  Serious: Yes (Other)
  Sender: FDA-Public Use
  Company Number: HR-ACTAVIS-2014-11388

PATIENT
  Age: 78 Year
  Sex: Female

DRUGS (2)
  1. LISINOPRIL (UNKNOWN) [Suspect]
     Indication: PRODUCT USED FOR UNKNOWN INDICATION
     Dosage: UNKNOWN
     Route: 065
  2. AMLODIPINE [Concomitant]
     Indication: PRODUCT USED FOR UNKNOWN INDICATION
     Dosage: 5 MG, DAILY
     Route: 065

REACTIONS (3)
  - Mouth ulceration [Recovered/Resolved]
  - Oral mucosal blistering [Recovered/Resolved]
  - Type IV hypersensitivity reaction [Recovered/Resolved]
